FAERS Safety Report 18581434 (Version 1)
Quarter: 2020Q4

REPORT INFORMATION
  Report Type: Spontaneous
  Country: IN (occurrence: IN)
  Receive Date: 20201204
  Receipt Date: 20201204
  Transmission Date: 20210114
  Serious: Yes (Death, Hospitalization)
  Sender: FDA-Public Use
  Company Number: IN-MYLANLABS-2020M1099526

PATIENT
  Age: 46 Year
  Sex: Male

DRUGS (10)
  1. DEXAMETHASONE. [Suspect]
     Active Substance: DEXAMETHASONE
     Indication: METASTASES TO PERIPHERAL NERVOUS SYSTEM
     Dosage: RECEIVED THREE CYCLES AS A....
     Route: 065
  2. CISPLATIN. [Suspect]
     Active Substance: CISPLATIN
     Indication: NON-HODGKIN^S LYMPHOMA RECURRENT
  3. METHOTREXATE. [Suspect]
     Active Substance: METHOTREXATE
     Indication: METASTASES TO PERIPHERAL NERVOUS SYSTEM
     Dosage: DOSE: 3.5 G/M2 (HIGH DOSE);
     Route: 042
  4. METHOTREXATE. [Suspect]
     Active Substance: METHOTREXATE
     Indication: NON-HODGKIN^S LYMPHOMA RECURRENT
  5. CYTARABINE. [Suspect]
     Active Substance: CYTARABINE
     Indication: METASTASES TO PERIPHERAL NERVOUS SYSTEM
     Dosage: RECEIVED THREE CYCLES AS A...
     Route: 065
  6. CISPLATIN. [Suspect]
     Active Substance: CISPLATIN
     Indication: METASTASES TO PERIPHERAL NERVOUS SYSTEM
     Dosage: RECEIVED THREE CYCLES AS...
     Route: 065
  7. RITUXIMAB. [Suspect]
     Active Substance: RITUXIMAB
     Indication: NON-HODGKIN^S LYMPHOMA RECURRENT
  8. CYTARABINE. [Suspect]
     Active Substance: CYTARABINE
     Indication: NON-HODGKIN^S LYMPHOMA RECURRENT
  9. RITUXIMAB. [Suspect]
     Active Substance: RITUXIMAB
     Indication: METASTASES TO PERIPHERAL NERVOUS SYSTEM
     Dosage: RECEIVED THREE CYCLES AS...
     Route: 065
  10. DEXAMETHASONE. [Suspect]
     Active Substance: DEXAMETHASONE
     Indication: NON-HODGKIN^S LYMPHOMA RECURRENT

REACTIONS (2)
  - Sepsis [Fatal]
  - Febrile neutropenia [Fatal]
